FAERS Safety Report 12392591 (Version 2)
Quarter: 2019Q2

REPORT INFORMATION
  Report Type: Spontaneous
  Country: US (occurrence: US)
  Receive Date: 20160523
  Receipt Date: 20190604
  Transmission Date: 20190711
  Serious: No
  Sender: FDA-Public Use
  Company Number: US-JAZZ-2015-US-014599

PATIENT
  Sex: Female
  Weight: 29.48 kg

DRUGS (9)
  1. XYREM [Suspect]
     Active Substance: SODIUM OXYBATE
     Indication: NARCOLEPSY
     Dosage: 2.25 G, BID
     Route: 048
     Dates: start: 20150221, end: 2015
  2. MODAFINIL. [Concomitant]
     Active Substance: MODAFINIL
     Dosage: 200 MG, UNK
  3. XYREM [Suspect]
     Active Substance: SODIUM OXYBATE
     Dosage: 3.5 G, SECOND DOSE
     Route: 048
     Dates: start: 2015
  4. MODAFINIL. [Concomitant]
     Active Substance: MODAFINIL
     Indication: NARCOLEPSY
     Dosage: 400 MG, UNK
     Dates: start: 20150220
  5. ZYRTEC ITCHY [Concomitant]
     Indication: RHINITIS
     Dosage: UNK, QD
  6. XYREM [Suspect]
     Active Substance: SODIUM OXYBATE
     Indication: CATAPLEXY
     Dosage: DOSAGE ADJUSTMENTS
     Route: 048
     Dates: start: 2015, end: 2015
  7. XYREM [Suspect]
     Active Substance: SODIUM OXYBATE
     Dosage: 4.5 G, FIRST DOSE
     Route: 048
     Dates: start: 2015
  8. CLARITIN EXTRA [Concomitant]
     Indication: RHINITIS
     Dosage: UNK, QH
     Dates: start: 20150220
  9. ALBUTEROL HFA [Concomitant]
     Active Substance: ALBUTEROL SULFATE
     Indication: RHINITIS
     Dosage: UNK, PRN

REACTIONS (7)
  - Dizziness [Recovered/Resolved]
  - Enuresis [Unknown]
  - Vomiting [Recovered/Resolved]
  - Tic [Not Recovered/Not Resolved]
  - Abdominal discomfort [Recovered/Resolved]
  - Sinus disorder [Unknown]
  - Nausea [Recovered/Resolved]

NARRATIVE: CASE EVENT DATE: 2015
